FAERS Safety Report 8538684-9 (Version None)
Quarter: 2012Q3

REPORT INFORMATION
  Report Type: 
  Country: None (occurrence: None)
  Receive Date: 20120726
  Receipt Date: 20120716
  Transmission Date: 20120928
  Serious: Yes (Hospitalization)
  Sender: FDA-Public Use
  Company Number: US-BAYER-2012-034556

PATIENT
  Age: 20 Year
  Sex: Female
  Weight: 56.689 kg

DRUGS (1)
  1. YAZ [Suspect]
     Indication: ACNE
     Dosage: UNK
     Dates: start: 20080101, end: 20090101

REACTIONS (4)
  - CHOLECYSTITIS ACUTE [None]
  - PAIN [None]
  - GALLBLADDER DISORDER [None]
  - INJURY [None]
